FAERS Safety Report 11502902 (Version 1)
Quarter: 2015Q3

REPORT INFORMATION
  Report Type: Spontaneous
  Country: US (occurrence: US)
  Receive Date: 20150914
  Receipt Date: 20150914
  Transmission Date: 20151125
  Serious: No
  Sender: FDA-Public Use
  Company Number: US-BAYER-2015-417574

PATIENT
  Age: 55 Year
  Sex: Female
  Weight: 58.96 kg

DRUGS (3)
  1. CLARITIN REDITABS [Suspect]
     Active Substance: LORATADINE
     Indication: EYE PRURITUS
  2. CLARITIN REDITABS [Suspect]
     Active Substance: LORATADINE
     Indication: RHINORRHOEA
  3. CLARITIN REDITABS [Suspect]
     Active Substance: LORATADINE
     Indication: NASAL CONGESTION
     Dosage: 1 DF, QD
     Route: 048
     Dates: end: 20150904

REACTIONS (9)
  - Dry eye [Not Recovered/Not Resolved]
  - Eye swelling [Not Recovered/Not Resolved]
  - Nasal pruritus [Unknown]
  - Nasal dryness [None]
  - Drug ineffective [Unknown]
  - Ocular hyperaemia [None]
  - Nasal oedema [Unknown]
  - Erythema [Unknown]
  - Eye pruritus [Not Recovered/Not Resolved]
